FAERS Safety Report 17770133 (Version 1)
Quarter: 2020Q2

REPORT INFORMATION
  Report Type: Spontaneous
  Country: US (occurrence: US)
  Receive Date: 20200512
  Receipt Date: 20200512
  Transmission Date: 20200714
  Serious: No
  Sender: FDA-Public Use
  Company Number: None

PATIENT
  Age: 73 Year
  Sex: Female
  Weight: 75.6 kg

DRUGS (4)
  1. IRBESARTAN. [Concomitant]
     Active Substance: IRBESARTAN
  2. ESTRADIOL. [Concomitant]
     Active Substance: ESTRADIOL
  3. CARVEDILOL. [Concomitant]
     Active Substance: CARVEDILOL
  4. CAPECITABINE. [Suspect]
     Active Substance: CAPECITABINE
     Indication: BREAST CANCER FEMALE
     Dosage: ?          OTHER FREQUENCY:AM, 1500MG PM;?
     Route: 048
     Dates: start: 20200422

REACTIONS (6)
  - Migraine [None]
  - Headache [None]
  - Alopecia [None]
  - Constipation [None]
  - Muscle spasms [None]
  - Pruritus [None]

NARRATIVE: CASE EVENT DATE: 20200512
